FAERS Safety Report 7712392-6 (Version None)
Quarter: 2011Q3

REPORT INFORMATION
  Report Type: 
  Country: None (occurrence: None)
  Receive Date: 20110826
  Receipt Date: 20110819
  Transmission Date: 20111222
  Serious: Yes (Hospitalization)
  Sender: FDA-Public Use
  Company Number: US-ROCHE-798371

PATIENT
  Sex: Female
  Weight: 63 kg

DRUGS (5)
  1. PREMARIN [Concomitant]
  2. GEMZAR [Concomitant]
  3. WATER PILL NOS [Concomitant]
  4. CAPECITABINE [Suspect]
     Route: 048
     Dates: start: 20110615, end: 20110816
  5. COUMADIN [Concomitant]

REACTIONS (1)
  - INTESTINAL OBSTRUCTION [None]
